FAERS Safety Report 4480990-1 (Version None)
Quarter: 2004Q3

REPORT INFORMATION
  Report Type: 
  Country: None (occurrence: None)
  Receive Date: 20040923
  Receipt Date: 20040616
  Transmission Date: 20050211
  Serious: No
  Sender: FDA-Public Use
  Company Number: USA040669030

PATIENT
  Age: 71 Year
  Sex: Female
  Weight: 48 kg

DRUGS (18)
  1. FORTEO [Suspect]
     Indication: BONE DENSITY DECREASED
     Dates: start: 20040601
  2. VITAMIN E [Concomitant]
  3. IRON [Concomitant]
  4. GLUCOSAMINE [Concomitant]
  5. OSCAL (CALCIUM CARBONATE) [Concomitant]
  6. FOLIC ACID [Concomitant]
  7. WELLBUTRIN (BUPROION HYDROCHLORIDE) [Concomitant]
  8. NEXIUM (ESOMEPHRAZOLE MAGNESIUM) [Concomitant]
  9. MULTIVITAMIN [Concomitant]
  10. BEXTRA (VLDECOXIB) [Concomitant]
  11. ULTRAM [Concomitant]
  12. GUAIFENESIN (GUAIFENESIN) [Concomitant]
  13. ALLEGRA [Concomitant]
  14. SYNTRHOID (LEVOTHYROXINE SODIUM) [Concomitant]
  15. LORAZEPAM [Concomitant]
  16. VASOTEC [Concomitant]
  17. CELEXA [Concomitant]
  18. TRIAMTERENE [Concomitant]

REACTIONS (6)
  - ASTHENIA [None]
  - CRYING [None]
  - EMOTIONAL DISTRESS [None]
  - FATIGUE [None]
  - HEADACHE [None]
  - STOMACH DISCOMFORT [None]
